FAERS Safety Report 4724844-1 (Version None)
Quarter: 2005Q3

REPORT INFORMATION
  Report Type: 
  Country: None (occurrence: None)
  Receive Date: 20050726
  Receipt Date: 20050714
  Transmission Date: 20060218
  Serious: Yes (Other)
  Sender: FDA-Public Use
  Company Number: PHBS2005TH10028

PATIENT
  Age: 50 Year
  Sex: Male

DRUGS (3)
  1. GLEEVEC [Suspect]
     Indication: GASTROINTESTINAL STROMAL TUMOUR
     Dosage: 400 MG/D
     Route: 048
     Dates: start: 20040701
  2. VITAMIN B-12 [Concomitant]
  3. FBC [Concomitant]

REACTIONS (2)
  - MALIGNANT NEOPLASM PROGRESSION [None]
  - NORMETANEPHRINE URINE INCREASED [None]
